FAERS Safety Report 15285085 (Version 3)
Quarter: 2018Q3

REPORT INFORMATION
  Report Type: Spontaneous
  Country: JP (occurrence: JP)
  Receive Date: 20180816
  Receipt Date: 20180928
  Transmission Date: 20181010
  Serious: Yes (Hospitalization, Other)
  Sender: FDA-Public Use
  Company Number: JP-009507513-1706JPN000972J

PATIENT
  Age: 58 Year
  Sex: Male
  Weight: 41 kg

DRUGS (12)
  1. CLARITHROMYCIN. [Concomitant]
     Active Substance: CLARITHROMYCIN
     Indication: ASTHMA
     Dosage: 200 MG, QD
     Route: 048
     Dates: start: 20170428
  2. CLEANAL [Concomitant]
     Active Substance: FUDOSTEINE
     Indication: ASTHMA
     Dosage: 200 MG, TID
     Route: 048
     Dates: start: 20170428
  3. NOVORAPID [Concomitant]
     Active Substance: INSULIN ASPART
     Dosage: 300 IU, TID
     Route: 051
  4. AMLODIPINE [Concomitant]
     Active Substance: AMLODIPINE BESYLATE
     Indication: HYPERTENSION
     Dosage: 5 MG, QD
     Route: 048
     Dates: start: 20170428
  5. KEYTRUDA [Suspect]
     Active Substance: PEMBROLIZUMAB
     Indication: SQUAMOUS CELL CARCINOMA OF LUNG
     Dosage: 200 MG, Q3W
     Route: 041
     Dates: start: 20170428, end: 20170519
  6. KEYTRUDA [Suspect]
     Active Substance: PEMBROLIZUMAB
     Dosage: 200 MG, Q3W
     Route: 041
     Dates: start: 20170721, end: 20170721
  7. KEYTRUDA [Suspect]
     Active Substance: PEMBROLIZUMAB
     Dosage: 200 MG, Q3W
     Route: 041
     Dates: start: 20171011, end: 20171011
  8. KEYTRUDA [Suspect]
     Active Substance: PEMBROLIZUMAB
     Dosage: 200 MG, Q3W
     Route: 041
     Dates: start: 20171212, end: 20171212
  9. JANUVIA [Concomitant]
     Active Substance: SITAGLIPTIN PHOSPHATE
     Indication: TYPE 2 DIABETES MELLITUS
     Dosage: 100 MG, QD
     Route: 048
     Dates: start: 20170523
  10. NIZORAL [Concomitant]
     Active Substance: KETOCONAZOLE
     Indication: SEBORRHOEIC DERMATITIS
     Dosage: UNK
     Route: 051
     Dates: start: 20170522, end: 20170703
  11. CANAGLU [Concomitant]
     Active Substance: CANAGLIFLOZIN
     Indication: TYPE 2 DIABETES MELLITUS
     Dosage: 100 MG, QD
     Route: 048
     Dates: start: 20170428
  12. KINDAVATE [Concomitant]
     Active Substance: CLOBETASONE BUTYRATE
     Indication: SEBORRHOEIC DERMATITIS
     Dosage: UNK
     Dates: start: 20170522

REACTIONS (7)
  - Neuropathy peripheral [Not Recovered/Not Resolved]
  - Pneumonia [Recovering/Resolving]
  - Seborrhoeic dermatitis [Recovering/Resolving]
  - Arthralgia [Recovering/Resolving]
  - Hypoaesthesia [Unknown]
  - Insomnia [Recovering/Resolving]
  - Pneumonia [Recovering/Resolving]

NARRATIVE: CASE EVENT DATE: 20170609
